FAERS Safety Report 24116244 (Version 1)
Quarter: 2024Q3

REPORT INFORMATION
  Report Type: Spontaneous
  Country: US (occurrence: US)
  Receive Date: 20240722
  Receipt Date: 20240722
  Transmission Date: 20241016
  Serious: Yes (Other)
  Sender: NOVO NORDISK
  Company Number: US-NOVOPROD-1255173

PATIENT
  Sex: Female

DRUGS (3)
  1. SEMAGLUTIDE [Suspect]
     Active Substance: SEMAGLUTIDE
     Indication: Weight control
     Dosage: 5 MG, QW
     Route: 058
     Dates: start: 202401
  2. SEMAGLUTIDE [Suspect]
     Active Substance: SEMAGLUTIDE
     Dosage: 40 MG, QW
     Route: 058
  3. WEGOVY [Suspect]
     Active Substance: SEMAGLUTIDE
     Indication: Weight decreased

REACTIONS (3)
  - Myocardial infarction [Recovered/Resolved]
  - Counterfeit product administered [Unknown]
  - Off label use [Unknown]
